FAERS Safety Report 20014099 (Version 5)
Quarter: 2021Q4

REPORT INFORMATION
  Report Type: Report from Study
  Country: DE (occurrence: None)
  Receive Date: 20211029
  Receipt Date: 20211109
  Transmission Date: 20220303
  Serious: Yes (Hospitalization)
  Sender: FDA-Public Use
  Company Number: DE-EISAI MEDICAL RESEARCH-EC-2021-102393

PATIENT
  Age: 61 Year
  Sex: Male
  Weight: 55 kg

DRUGS (8)
  1. LENVATINIB [Suspect]
     Active Substance: LENVATINIB
     Indication: Squamous cell carcinoma of head and neck
     Route: 048
     Dates: start: 20211012, end: 20211022
  2. PEMBROLIZUMAB [Suspect]
     Active Substance: PEMBROLIZUMAB
     Indication: Squamous cell carcinoma of head and neck
     Route: 041
     Dates: start: 20211012, end: 20211012
  3. SIMVASTATIN [Concomitant]
     Active Substance: SIMVASTATIN
     Dates: start: 200007
  4. ASPIRIN [Concomitant]
     Active Substance: ASPIRIN
     Dates: start: 200007
  5. RAMIPRIL [Concomitant]
     Active Substance: RAMIPRIL
     Dates: start: 200007
  6. NEBIVOLOL [Concomitant]
     Active Substance: NEBIVOLOL
     Dates: start: 201007
  7. PANTOPRAZOLE [Concomitant]
     Active Substance: PANTOPRAZOLE
     Dates: start: 201607
  8. LEVOTHYROXINE SODIUM [Concomitant]
     Active Substance: LEVOTHYROXINE SODIUM
     Dates: start: 201907

REACTIONS (1)
  - Dysphagia [Recovering/Resolving]

NARRATIVE: CASE EVENT DATE: 20211016
